FAERS Safety Report 7467808-X (Version None)
Quarter: 2011Q2

REPORT INFORMATION
  Report Type: 
  Country: None (occurrence: None)
  Receive Date: 20110509
  Receipt Date: 20110105
  Transmission Date: 20111010
  Serious: No
  Sender: FDA-Public Use
  Company Number: US-ALEXION-A201100027

PATIENT
  Sex: Female

DRUGS (3)
  1. NOVOLOG [Concomitant]
  2. PREDNISONE [Concomitant]
     Indication: HAEMOLYSIS
     Dosage: VARIABLE TAPER
     Route: 048
     Dates: start: 20100401, end: 20110129
  3. SOLIRIS [Suspect]
     Indication: PAROXYSMAL NOCTURNAL HAEMOGLOBINURIA
     Dosage: 600 MG, QWX4
     Route: 042
     Dates: start: 20110103, end: 20110131

REACTIONS (15)
  - PLATELET COUNT DECREASED [None]
  - BLOOD GLUCOSE FLUCTUATION [None]
  - NEUTROPHIL COUNT DECREASED [None]
  - BLOOD PRESSURE DECREASED [None]
  - EAR PAIN [None]
  - DIZZINESS [None]
  - GINGIVAL PAIN [None]
  - MUSCULOSKELETAL STIFFNESS [None]
  - HAEMOGLOBIN DECREASED [None]
  - ABDOMINAL PAIN [None]
  - HEART RATE DECREASED [None]
  - MUSCLE SPASMS [None]
  - CONTUSION [None]
  - BLOOD COUNT ABNORMAL [None]
  - WHITE BLOOD CELL COUNT DECREASED [None]
